FAERS Safety Report 7900999-2 (Version None)
Quarter: 2011Q4

REPORT INFORMATION
  Report Type: 
  Country: None (occurrence: None)
  Receive Date: 20111108
  Receipt Date: 20111103
  Transmission Date: 20120403
  Serious: Yes (Other)
  Sender: FDA-Public Use
  Company Number: CA-PFIZER INC-2011269606

PATIENT
  Age: 55 Year
  Sex: Female

DRUGS (14)
  1. LYRICA [Suspect]
     Dosage: 100 MG, 2X/DAY
     Dates: start: 20110101, end: 20110101
  2. IMOVANE [Concomitant]
     Dosage: 7.5 (UNITS NOT PROVIDED) ONCE DAILY
  3. JANUVIA [Concomitant]
     Dosage: 100 MG, 1X/DAY
  4. GLUCOPHAGE [Concomitant]
     Dosage: 850 MG, 2X/DAY
  5. PROMETRIUM [Concomitant]
     Dosage: 100 MG, 1X/DAY
  6. LYRICA [Suspect]
     Dosage: 150 MG, 2X/DAY
     Dates: start: 20110101
  7. LIPITOR [Concomitant]
     Dosage: 10 MG, 1X/DAY
  8. LYRICA [Suspect]
     Dosage: 25 MG, 2X/DAY
     Dates: start: 20100501, end: 20100101
  9. ASPIRIN [Concomitant]
     Dosage: 80MG
  10. VITAMIN B COMPLEX CAP [Concomitant]
     Dosage: 400 IU, 2X/DAY
  11. LYRICA [Suspect]
     Dosage: 50 MG, 2X/DAY
     Dates: start: 20100101, end: 20100101
  12. ESTROGENS [Concomitant]
     Dosage: 1 PUMPS ONCE DAILY
  13. LYRICA [Suspect]
     Dosage: 75 MG, 2X/DAY
     Dates: start: 20100101
  14. CALCIUM [Concomitant]
     Dosage: 500MG

REACTIONS (1)
  - POSTMENOPAUSAL HAEMORRHAGE [None]
